FAERS Safety Report 8565514-1 (Version None)
Quarter: 2012Q3

REPORT INFORMATION
  Report Type: 
  Country: None (occurrence: None)
  Receive Date: 20120803
  Receipt Date: 20120725
  Transmission Date: 20120928
  Serious: Yes (Hospitalization)
  Sender: FDA-Public Use
  Company Number: CA-JNJFOC-20120715183

PATIENT
  Sex: Female
  Weight: 73 kg

DRUGS (2)
  1. REMICADE [Suspect]
     Indication: CROHN'S DISEASE
     Route: 042
     Dates: start: 20120725, end: 20120725
  2. REMICADE [Suspect]
     Route: 042

REACTIONS (2)
  - ABDOMINAL PAIN [None]
  - GASTROINTESTINAL DISORDER [None]
